FAERS Safety Report 4624300-5 (Version None)
Quarter: 2005Q1

REPORT INFORMATION
  Report Type: 
  Country: None (occurrence: None)
  Receive Date: 20050331
  Receipt Date: 20050323
  Transmission Date: 20050727
  Serious: Yes (Other)
  Sender: FDA-Public Use
  Company Number: JP-ABBOTT-05P-087-0295078-00

PATIENT
  Sex: Male

DRUGS (9)
  1. CLARITHROMYCIN [Suspect]
     Indication: HELICOBACTER INFECTION
     Dosage: 0.5 CARD
     Route: 048
     Dates: start: 20041105, end: 20041105
  2. CLARITHROMYCIN [Suspect]
     Indication: GASTRIC ULCER
     Dosage: 0.5 CARD
     Route: 048
     Dates: start: 20041106, end: 20041107
  3. LANSOPRAZOLE [Suspect]
     Indication: HELICOBACTER INFECTION
     Dosage: 0.5 CARD
     Route: 048
     Dates: start: 20041105, end: 20041105
  4. LANSOPRAZOLE [Suspect]
     Indication: GASTRIC ULCER
     Dosage: 0.5 CARD
     Route: 048
     Dates: start: 20041106, end: 20041107
  5. AMOXICILLIN [Suspect]
     Indication: HELICOBACTER INFECTION
     Dosage: 0.5 CARD
     Route: 048
     Dates: start: 20041105, end: 20041105
  6. AMOXICILLIN [Suspect]
     Indication: GASTRIC ULCER
     Dosage: 0.5 CARD
     Route: 048
     Dates: start: 20041106, end: 20041107
  7. CARBAMAZEPINE [Concomitant]
     Indication: POLYNEUROPATHY
     Route: 048
     Dates: start: 19941201
  8. ETIZOLAM [Concomitant]
     Indication: POLYNEUROPATHY
     Route: 048
     Dates: start: 19900326
  9. TOCOPHERYL NICOTINATE [Concomitant]
     Indication: POLYNEUROPATHY
     Route: 048
     Dates: start: 19891113

REACTIONS (11)
  - ABDOMINAL PAIN LOWER [None]
  - ABDOMINAL PAIN UPPER [None]
  - ABDOMINAL TENDERNESS [None]
  - ANOREXIA [None]
  - DIARRHOEA [None]
  - GASTRIC OUTLET OBSTRUCTION [None]
  - GASTRIC ULCER [None]
  - GASTROINTESTINAL PAIN [None]
  - ORAL INTAKE REDUCED [None]
  - VOMITING [None]
  - WEIGHT DECREASED [None]
